FAERS Safety Report 15810404 (Version 1)
Quarter: 2019Q1

REPORT INFORMATION
  Report Type: Spontaneous
  Country: US (occurrence: US)
  Receive Date: 20190111
  Receipt Date: 20190111
  Transmission Date: 20190417
  Serious: No
  Sender: FDA-Public Use
  Company Number: US-ROCHE-2212855

PATIENT
  Sex: Female

DRUGS (10)
  1. ATENOLOL. [Concomitant]
     Active Substance: ATENOLOL
  2. XALATAN [Concomitant]
     Active Substance: LATANOPROST
  3. PREDNISONE. [Concomitant]
     Active Substance: PREDNISONE
  4. CELEBREX [Concomitant]
     Active Substance: CELECOXIB
  5. DOXEPIN [Concomitant]
     Active Substance: DOXEPIN
  6. RITUXIMAB. [Suspect]
     Active Substance: RITUXIMAB
     Indication: PRODUCT USED FOR UNKNOWN INDICATION
     Route: 065
  7. HYDROCHLOROTHIAZIDE. [Concomitant]
     Active Substance: HYDROCHLOROTHIAZIDE
  8. ULTRAM [Concomitant]
     Active Substance: TRAMADOL HYDROCHLORIDE
  9. ZOLOFT [Concomitant]
     Active Substance: SERTRALINE HYDROCHLORIDE
  10. TIMOPTIC [Concomitant]
     Active Substance: TIMOLOL MALEATE

REACTIONS (1)
  - Urinary tract infection [Unknown]
